FAERS Safety Report 10341134 (Version 13)
Quarter: 2015Q4

REPORT INFORMATION
  Report Type: Spontaneous
  Country: US (occurrence: US)
  Receive Date: 20140724
  Receipt Date: 20151106
  Transmission Date: 20160304
  Serious: Yes (Hospitalization)
  Sender: FDA-Public Use
  Company Number: US-ACTELION-A-NJ2014-102673

PATIENT
  Age: 70 Year
  Sex: Female

DRUGS (6)
  1. VENTAVIS [Suspect]
     Active Substance: ILOPROST
     Dosage: 5 MCG, 4-5 X D
     Route: 055
     Dates: start: 20120629
  2. VENTAVIS [Suspect]
     Active Substance: ILOPROST
     Indication: PULMONARY HYPERTENSION
     Dosage: 5 MCG, 4-5 X D
     Route: 055
     Dates: start: 20120709
  3. SILDENAFIL. [Concomitant]
     Active Substance: SILDENAFIL
  4. VENTAVIS [Suspect]
     Active Substance: ILOPROST
     Dosage: 5 MCG, 6-9X/DAY
     Route: 055
  5. RIOCIGUAT [Suspect]
     Active Substance: RIOCIGUAT
     Indication: PULMONARY ARTERIAL HYPERTENSION
     Dosage: 2.5 MG, TID
     Route: 048
     Dates: start: 20140327
  6. OPSUMIT [Suspect]
     Active Substance: MACITENTAN
     Indication: PULMONARY HYPERTENSION
     Dosage: 10 MG, QD
     Route: 048
     Dates: start: 20140805

REACTIONS (10)
  - Hernia [Unknown]
  - Rectal prolapse [Unknown]
  - Drug dose omission [Not Recovered/Not Resolved]
  - Diarrhoea [Unknown]
  - Nasopharyngitis [Unknown]
  - Vomiting [Unknown]
  - Cough [Unknown]
  - Dyspepsia [Unknown]
  - Small intestinal obstruction [Unknown]
  - Oesophageal disorder [Unknown]
